FAERS Safety Report 12660970 (Version 2)
Quarter: 2016Q3

REPORT INFORMATION
  Report Type: Spontaneous
  Country: US (occurrence: US)
  Receive Date: 20160817
  Receipt Date: 20160901
  Transmission Date: 20161109
  Serious: No
  Sender: FDA-Public Use
  Company Number: US-RELYPSA-RLY2016001472

PATIENT
  Sex: Female

DRUGS (9)
  1. ALLOPURINOL. [Concomitant]
     Active Substance: ALLOPURINOL
  2. CLONIDINE HCL [Concomitant]
     Active Substance: CLONIDINE HYDROCHLORIDE
  3. AMIODARONE HCL [Concomitant]
     Active Substance: AMIODARONE HYDROCHLORIDE
  4. RENVELA [Concomitant]
     Active Substance: SEVELAMER CARBONATE
  5. VELTASSA [Suspect]
     Active Substance: PATIROMER
     Indication: HYPERKALAEMIA
     Dosage: 8.4 G, QD
     Route: 048
     Dates: start: 20160326
  6. AMLODIPINE BESYLATE. [Concomitant]
     Active Substance: AMLODIPINE BESYLATE
  7. CARVEDILOL. [Concomitant]
     Active Substance: CARVEDILOL
  8. KIONEX [Concomitant]
     Active Substance: SODIUM POLYSTYRENE SULFONATE
  9. TEMAZEPAM. [Concomitant]
     Active Substance: TEMAZEPAM

REACTIONS (5)
  - Dry throat [Unknown]
  - Arthralgia [Unknown]
  - Myalgia [Unknown]
  - Drug dose omission [Unknown]
  - Musculoskeletal stiffness [Unknown]

NARRATIVE: CASE EVENT DATE: 2016
